FAERS Safety Report 21311835 (Version 1)
Quarter: 2022Q3

REPORT INFORMATION
  Report Type: Spontaneous
  Country: US (occurrence: None)
  Receive Date: 20220909
  Receipt Date: 20220909
  Transmission Date: 20221027
  Serious: No
  Sender: FDA-Public Use
  Company Number: US-ARIS GLOBAL-202203-0536

PATIENT
  Sex: Female
  Weight: 100 kg

DRUGS (5)
  1. OXERVATE [Suspect]
     Active Substance: CENEGERMIN-BKBJ
     Indication: Neurotrophic keratopathy
     Route: 047
     Dates: start: 20220317, end: 20220516
  2. ACETAMINOPHEN\HYDROCODONE [Concomitant]
     Active Substance: ACETAMINOPHEN\HYDROCODONE
  3. RESTASIS [Concomitant]
     Active Substance: CYCLOSPORINE
  4. CARVEDILOL [Concomitant]
     Active Substance: CARVEDILOL
  5. INSULIN ASPART [Concomitant]
     Active Substance: INSULIN ASPART
     Dosage: 100/ML VIAL

REACTIONS (11)
  - Eye pain [Not Recovered/Not Resolved]
  - Product dose omission issue [Unknown]
  - Vision blurred [Not Recovered/Not Resolved]
  - Intentional product misuse [Unknown]
  - Eye irritation [Unknown]
  - Periorbital pain [Unknown]
  - Eye swelling [Unknown]
  - Headache [Unknown]
  - Rhinorrhoea [Unknown]
  - Underdose [Unknown]
  - Intentional product misuse [Unknown]
